FAERS Safety Report 18531792 (Version 1)
Quarter: 2020Q4

REPORT INFORMATION
  Report Type: Spontaneous
  Country: US (occurrence: US)
  Receive Date: 20201123
  Receipt Date: 20201123
  Transmission Date: 20210114
  Serious: No
  Sender: FDA-Public Use
  Company Number: US-CIPLA LTD.-2020US07645

PATIENT

DRUGS (2)
  1. TESTOSTERONE. [Suspect]
     Active Substance: TESTOSTERONE
     Dosage: UNK (TWO OF THE SAMPLE)
     Route: 061
  2. TESTOSTERONE. [Suspect]
     Active Substance: TESTOSTERONE
     Indication: BLOOD TESTOSTERONE DECREASED
     Dosage: UNK (TWO OF THE SAMPLE)
     Route: 061
     Dates: start: 201809

REACTIONS (2)
  - Drug delivery system issue [Unknown]
  - Product design issue [Unknown]

NARRATIVE: CASE EVENT DATE: 201809
